FAERS Safety Report 4446585-0 (Version None)
Quarter: 2004Q3

REPORT INFORMATION
  Report Type: 
  Country: None (occurrence: None)
  Receive Date: 20040908
  Receipt Date: 20040826
  Transmission Date: 20050211
  Serious: Yes (Other)
  Sender: FDA-Public Use
  Company Number: CIP04001882

PATIENT
  Age: 26 Year
  Sex: Female

DRUGS (11)
  1. ACTONEL [Suspect]
     Dosage: 35MG ONCE WEEKLY, ORAL
     Route: 048
     Dates: start: 20040201, end: 20040201
  2. MYSOLINE ^ASTRA^ (PRIMDONE) [Concomitant]
  3. KLONOPIN [Concomitant]
  4. LAMICTAL [Concomitant]
  5. PHENOBARBITAL TAB [Concomitant]
  6. BENADRYL ^WARNER-LAMBERT^ [Concomitant]
  7. IRON W/VITAMINS NOS (IRON, VITAMINS NOS) [Concomitant]
  8. COLACE (DOCUSATE SODIUM) [Concomitant]
  9. CALCIUM WITH VITAMIN D (CALCIUM PHOSPHATE, CALCIUM SODIUM LACTATE) [Concomitant]
  10. NEXIUM [Concomitant]
  11. ANTIBIOTICS [Concomitant]

REACTIONS (1)
  - CONVULSION [None]
